FAERS Safety Report 8442760-9 (Version None)
Quarter: 2012Q2

REPORT INFORMATION
  Report Type: 
  Country: None (occurrence: None)
  Receive Date: 20120615
  Receipt Date: 20120611
  Transmission Date: 20120825
  Serious: Yes (Death, Disabling)
  Sender: FDA-Public Use
  Company Number: US-ROCHE-1004350

PATIENT
  Sex: Male
  Weight: 103 kg

DRUGS (2)
  1. ZELBORAF [Suspect]
     Indication: MALIGNANT MELANOMA
     Route: 048
     Dates: start: 20110808, end: 20111117
  2. VITAMIN D [Concomitant]
     Indication: HYPOVITAMINOSIS
     Route: 048
     Dates: start: 20110811

REACTIONS (7)
  - DISEASE PROGRESSION [None]
  - ALOPECIA [None]
  - SKIN PAPILLOMA [None]
  - BACK PAIN [None]
  - EYE PRURITUS [None]
  - FATIGUE [None]
  - HEADACHE [None]
